FAERS Safety Report 7473872-4 (Version None)
Quarter: 2011Q2

REPORT INFORMATION
  Report Type: 
  Country: None (occurrence: None)
  Receive Date: 20110511
  Receipt Date: 20110328
  Transmission Date: 20111010
  Serious: Yes (Hospitalization)
  Sender: FDA-Public Use
  Company Number: US-BAYER-201030659NA

PATIENT
  Age: 46 Year
  Sex: Female
  Weight: 72.562 kg

DRUGS (1)
  1. YASMIN [Suspect]
     Route: 048
     Dates: start: 20010101, end: 20020301

REACTIONS (3)
  - PULMONARY EMBOLISM [None]
  - THROMBOPHLEBITIS SUPERFICIAL [None]
  - DEEP VEIN THROMBOSIS [None]
